FAERS Safety Report 24284912 (Version 1)
Quarter: 2024Q3

REPORT INFORMATION
  Report Type: Spontaneous
  Country: US (occurrence: None)
  Receive Date: 20240831
  Receipt Date: 20240831
  Transmission Date: 20241016
  Serious: Yes (Hospitalization)
  Sender: Public
  Company Number: None

PATIENT
  Age: 73 Year
  Sex: Male
  Weight: 82 kg

DRUGS (8)
  1. FLUOROURACIL [Suspect]
     Active Substance: FLUOROURACIL
     Dates: end: 20240816
  2. CAMPTOSAR [Suspect]
     Active Substance: IRINOTECAN HYDROCHLORIDE
     Dates: end: 20240816
  3. LEUCOVORIN CALCIUM [Suspect]
     Active Substance: LEUCOVORIN CALCIUM
     Dates: end: 20240816
  4. NIVOLUMAB [Suspect]
     Active Substance: NIVOLUMAB
     Dates: end: 20240816
  5. ELOXATIN [Suspect]
     Active Substance: OXALIPLATIN
     Dates: end: 20240816
  6. ONDANSETRON [Concomitant]
     Active Substance: ONDANSETRON
  7. PROCHLORPERAZINE [Concomitant]
     Active Substance: PROCHLORPERAZINE
  8. ROSUVASTATIN [Concomitant]
     Active Substance: ROSUVASTATIN\ROSUVASTATIN CALCIUM

REACTIONS (11)
  - Asthenia [None]
  - Fatigue [None]
  - Hypophagia [None]
  - Tachycardia [None]
  - Hyponatraemia [None]
  - Hypokalaemia [None]
  - Azotaemia [None]
  - Hyperglycaemia [None]
  - Neutropenia [None]
  - Hypotension [None]
  - Anaemia [None]

NARRATIVE: CASE EVENT DATE: 20240828
